FAERS Safety Report 8888274 (Version 1)
Quarter: 2012Q4

REPORT INFORMATION
  Report Type: 
  Country: GB (occurrence: GB)
  Receive Date: 20121106
  Receipt Date: 20121106
  Transmission Date: 20130627
  Serious: Yes (Other)
  Sender: FDA-Public Use
  Company Number: GB-PFIZER INC-2012273329

PATIENT
  Age: 44 Year
  Sex: Female
  Weight: 171 kg

DRUGS (11)
  1. TRANEXAMIC ACID [Suspect]
     Dosage: UNK
     Dates: start: 20120829
  2. AMLODIPINE [Concomitant]
     Dosage: UNK
     Dates: start: 20120611
  3. BENDROFLUMETHIAZIDE [Concomitant]
     Dosage: UNK
     Dates: start: 20120611
  4. MONTELUKAST [Concomitant]
     Dosage: UNK
     Dates: start: 20120611
  5. RAMIPRIL [Concomitant]
     Dosage: UNK
     Dates: start: 20120611
  6. CITALOPRAM [Concomitant]
     Dosage: UNK
     Dates: start: 20120713
  7. DOXAZOSIN [Concomitant]
     Dosage: UNK
     Dates: start: 20120713, end: 20120810
  8. FUROSEMIDE [Concomitant]
     Dosage: UNK
     Dates: start: 20120713, end: 20121017
  9. PARACETAMOL WITH CODEINE [Concomitant]
     Dosage: UNK
     Dates: start: 20120713, end: 20120912
  10. PARACETAMOL WITH CODEINE [Concomitant]
     Dates: start: 20120919, end: 20121019
  11. FERROUS SULPHATE [Concomitant]
     Dosage: UNK
     Dates: start: 20120829, end: 20120926

REACTIONS (3)
  - Rash [Not Recovered/Not Resolved]
  - Dyspnoea [Not Recovered/Not Resolved]
  - Vomiting [Not Recovered/Not Resolved]
